FAERS Safety Report 10066337 (Version 2)
Quarter: 2015Q2

REPORT INFORMATION
  Report Type: Spontaneous
  Country: US (occurrence: US)
  Receive Date: 20140408
  Receipt Date: 20150406
  Transmission Date: 20150821
  Serious: Yes (Life-Threatening, Hospitalization, Other)
  Sender: FDA-Public Use
  Company Number: US-009507513-1404USA003571

PATIENT
  Sex: Female
  Weight: 111.11 kg

DRUGS (4)
  1. JANUMET [Suspect]
     Active Substance: METFORMIN HYDROCHLORIDE\SITAGLIPTIN PHOSPHATE
     Indication: TYPE 2 DIABETES MELLITUS
     Dosage: 50-1000 MG, BID
     Route: 048
     Dates: start: 20090216, end: 20130417
  2. POTASSIUM CHLORIDE. [Concomitant]
     Active Substance: POTASSIUM CHLORIDE
     Indication: HYPOKALAEMIA
     Dosage: UNK
     Dates: start: 2004
  3. BENICAR HCT [Concomitant]
     Active Substance: HYDROCHLOROTHIAZIDE\OLMESARTAN MEDOXOMIL
     Indication: HYPERTENSION
     Dosage: UNK
     Dates: start: 2004
  4. CRESTOR [Concomitant]
     Active Substance: ROSUVASTATIN CALCIUM
     Indication: HYPERCHOLESTEROLAEMIA
     Dosage: UNK
     Dates: start: 2004

REACTIONS (17)
  - Pancreatic carcinoma [Unknown]
  - Cholelithiasis [Unknown]
  - Renal cyst [Unknown]
  - Splenic cyst [Unknown]
  - Arthritis [Unknown]
  - Aortic calcification [Unknown]
  - Constipation [Unknown]
  - Splenectomy [Unknown]
  - Cholecystectomy [Unknown]
  - Muscle spasms [Unknown]
  - Hypocalcaemia [Unknown]
  - Hypophosphataemia [Unknown]
  - Anaemia [Unknown]
  - Gastrooesophageal reflux disease [Unknown]
  - Pancreatic cyst [Unknown]
  - Pancreatectomy [Unknown]
  - Anxiety [Unknown]

NARRATIVE: CASE EVENT DATE: 20120501
